FAERS Safety Report 14599030 (Version 2)
Quarter: 2018Q1

REPORT INFORMATION
  Report Type: Spontaneous
  Country: DE (occurrence: DE)
  Receive Date: 20180305
  Receipt Date: 20180305
  Transmission Date: 20180509
  Serious: Yes (Other)
  Sender: FDA-Public Use
  Company Number: DE-CONCORDIA PHARMACEUTICALS INC.-E2B_00010195

PATIENT
  Sex: Female
  Weight: 49 kg

DRUGS (5)
  1. IBUPROFEN. [Concomitant]
     Active Substance: IBUPROFEN
     Indication: BACK PAIN
     Dosage: 200 [MG/D ]
     Route: 048
     Dates: start: 20161204, end: 20170830
  2. VERAPAMIL [Concomitant]
     Active Substance: VERAPAMIL HYDROCHLORIDE
     Indication: HEADACHE
     Dosage: 320 [MG/D ]/ SLOW DOSAGE INCREASE
     Route: 048
     Dates: start: 20170507, end: 20170615
  3. PARACETAMOL [Concomitant]
     Active Substance: ACETAMINOPHEN
     Indication: HEADACHE
     Dosage: 1000 [MG/D ]/ BIS 500 MG/D
     Route: 048
     Dates: start: 20170715, end: 20170829
  4. FEMIBION [Concomitant]
     Active Substance: VITAMINS
     Indication: PROPHYLAXIS OF NEURAL TUBE DEFECT
     Route: 048
     Dates: start: 20161204, end: 20170209
  5. PREDNISOLONE. [Suspect]
     Active Substance: PREDNISOLONE
     Indication: HEADACHE
     Dosage: 50 [MG/D ]/ INITIAL 50MG7D FOR FIVE DAYS, THEN DOSAGE REDUCTION OF 10MG EVERY SECOND DAY
     Route: 048
     Dates: start: 20170613, end: 20170625

REACTIONS (1)
  - Gestational diabetes [Recovered/Resolved]
